FAERS Safety Report 7777683 (Version 2)
Quarter: 2012Q4

REPORT INFORMATION
  Report Type: 
  Country: US (occurrence: US)
  Receive Date: 20110128
  Receipt Date: 20121029
  Transmission Date: 20130627
  Serious: Yes (Hospitalization, Other)
  Sender: FDA-Public Use
  Company Number: US-BAYER-201023788NA

PATIENT
  Age: 25 Year
  Sex: Female
  Weight: 64 kg

DRUGS (8)
  1. YAZ [Suspect]
     Indication: CONTRACEPTION
     Dosage: UNK
     Dates: start: 200804, end: 200811
  2. YAZ [Suspect]
     Indication: PELVIC PAIN
  3. YASMIN [Suspect]
     Indication: PELVIC PAIN
  4. OCELLA [Suspect]
     Indication: PELVIC PAIN
  5. NASONEX [Concomitant]
     Indication: ALLERGY
     Dosage: UNK
     Dates: start: 2003
  6. VITAMIN C [ASCORBIC ACID] [Concomitant]
     Indication: PRODUCT USED FOR UNKNOWN INDICATION
  7. PERCOCET [Concomitant]
     Indication: PAIN
  8. MUCINEX [Concomitant]

REACTIONS (6)
  - Deep vein thrombosis [None]
  - Thrombophlebitis [None]
  - Chest pain [None]
  - Oedema peripheral [None]
  - Bone pain [None]
  - Mental disorder [None]
